FAERS Safety Report 24567461 (Version 1)
Quarter: 2024Q4

REPORT INFORMATION
  Report Type: Report from Study
  Country: US (occurrence: US)
  Receive Date: 20241030
  Receipt Date: 20241030
  Transmission Date: 20250114
  Serious: Yes (Hospitalization, Other)
  Sender: ABBVIE
  Company Number: US-ABBVIE-5981128

PATIENT
  Age: 55 Year
  Sex: Female

DRUGS (1)
  1. HUMIRA [Suspect]
     Active Substance: ADALIMUMAB
     Indication: Spondyloarthropathy
     Route: 058

REACTIONS (15)
  - Deep vein thrombosis [Unknown]
  - Hiatus hernia [Unknown]
  - Procedural complication [Unknown]
  - Chest pain [Not Recovered/Not Resolved]
  - Wheezing [Unknown]
  - Cough [Unknown]
  - Inflammation [Unknown]
  - Headache [Recovered/Resolved]
  - Dyspnoea [Unknown]
  - Infusion site warmth [Unknown]
  - Crepitations [Unknown]
  - Malaise [Unknown]
  - Spinal operation [Unknown]
  - Panic attack [Unknown]
  - Infusion site pain [Unknown]

NARRATIVE: CASE EVENT DATE: 20240101
